FAERS Safety Report 9845536 (Version 2)
Quarter: 2014Q2

REPORT INFORMATION
  Report Type: Spontaneous
  Country: CA (occurrence: None)
  Receive Date: 20140123
  Receipt Date: 20140512
  Transmission Date: 20141212
  Serious: Yes (Hospitalization, Disabling)
  Sender: FDA-Public Use
  Company Number: AUR-APL-2014-00293

PATIENT
  Age: 88 Year
  Sex: Female
  Weight: 77 kg

DRUGS (10)
  1. ATORVASTATIN [Suspect]
     Indication: PRODUCT USED FOR UNKNOWN INDICATION
     Route: 048
  2. AMLODIPINE (AMLODIPINE) [Suspect]
     Indication: PRODUCT USED FOR UNKNOWN INDICATION
     Route: 048
  3. PANTOPRAZOLE [Suspect]
     Indication: PRODUCT USED FOR UNKNOWN INDICATION
     Dosage: 40MG (40MG, 1 IN 1D) ORAL
     Route: 048
  4. FUROSEMIDE (FUROSEMIDE) [Suspect]
     Indication: PRODUCT USED FOR UNKNOWN INDICATION
     Route: 048
  5. IRON (IRON) [Concomitant]
  6. MULTIVITAMINS (MULTIVITAMINS) [Concomitant]
  7. TRAVATAN Z(TRAVOPROST) [Concomitant]
  8. TRIAMCINOLONE (TRIAMCINOLONE) [Concomitant]
  9. CALCIUM (CALCIUM) [Concomitant]
  10. COSOPT [Concomitant]

REACTIONS (12)
  - Burning sensation [None]
  - Chest discomfort [None]
  - Chills [None]
  - Decreased appetite [None]
  - Dysgeusia [None]
  - Fatigue [None]
  - Feeling cold [None]
  - Gamma-glutamyltransferase increased [None]
  - Headache [None]
  - Nausea [None]
  - Paraesthesia [None]
  - Rash macular [None]
